FAERS Safety Report 16851432 (Version 2)
Quarter: 2019Q4

REPORT INFORMATION
  Report Type: Spontaneous
  Country: US (occurrence: US)
  Receive Date: 20190925
  Receipt Date: 20191114
  Transmission Date: 20200122
  Serious: Yes (Other)
  Sender: FDA-Public Use
  Company Number: US-PFIZER INC-2019412649

PATIENT
  Age: 73 Year
  Sex: Male
  Weight: 68.4 kg

DRUGS (1)
  1. VFEND [Suspect]
     Active Substance: VORICONAZOLE
     Indication: PULMONARY HAEMORRHAGE
     Dosage: 200 MG, 2X/DAY
     Route: 048
     Dates: start: 201909

REACTIONS (9)
  - Hallucination [Recovered/Resolved]
  - Fall [Recovered/Resolved]
  - Liver disorder [Unknown]
  - Dizziness [Unknown]
  - Therapeutic response unexpected [Unknown]
  - Product use in unapproved indication [Unknown]
  - Off label use [Unknown]
  - Pre-existing condition improved [Unknown]
  - Asthenia [Unknown]

NARRATIVE: CASE EVENT DATE: 201909
